FAERS Safety Report 13981386 (Version 1)
Quarter: 2017Q3

REPORT INFORMATION
  Report Type: Spontaneous
  Country: US (occurrence: US)
  Receive Date: 20170916
  Receipt Date: 20170916
  Transmission Date: 20171128
  Serious: Yes (Life-Threatening, Disabling, Other)
  Sender: FDA-Public Use
  Company Number: None

PATIENT
  Age: 29 Year
  Sex: Female
  Weight: 69.75 kg

DRUGS (3)
  1. YAZ [Suspect]
     Active Substance: DROSPIRENONE\ETHINYL ESTRADIOL
     Indication: MENSTRUATION IRREGULAR
     Dosage: ?          QUANTITY:31 TABLET(S);?
     Route: 048
     Dates: start: 20170106, end: 20170901
  2. IBUPROFEN. [Concomitant]
     Active Substance: IBUPROFEN
  3. YAZ [Suspect]
     Active Substance: DROSPIRENONE\ETHINYL ESTRADIOL
     Indication: CONTRACEPTION
     Dosage: ?          QUANTITY:31 TABLET(S);?
     Route: 048
     Dates: start: 20170106, end: 20170901

REACTIONS (2)
  - Depression [None]
  - Chloasma [None]

NARRATIVE: CASE EVENT DATE: 20170501
